FAERS Safety Report 7343840-1 (Version None)
Quarter: 2011Q1

REPORT INFORMATION
  Report Type: 
  Country: None (occurrence: None)
  Receive Date: 20110310
  Receipt Date: 20110217
  Transmission Date: 20110831
  Serious: Yes (Death, Hospitalization)
  Sender: FDA-Public Use
  Company Number: JP-ROCHE-760367

PATIENT
  Age: 50 Year
  Sex: Male

DRUGS (5)
  1. PEGINTERFERON ALFA-2A [Suspect]
     Route: 058
     Dates: start: 20091012
  2. MK-7009 [Suspect]
     Route: 065
     Dates: start: 20100330
  3. PEGINTERFERON ALFA-2A [Suspect]
     Route: 058
     Dates: start: 20100330, end: 20101006
  4. RIBAVIRIN [Suspect]
     Route: 048
     Dates: start: 20100508
  5. RIBAVIRIN [Suspect]
     Route: 048
     Dates: start: 20100330, end: 20100506

REACTIONS (3)
  - DISSEMINATED INTRAVASCULAR COAGULATION [None]
  - RENAL FAILURE [None]
  - BACTERIAL INFECTION [None]
